FAERS Safety Report 7300602-9 (Version None)
Quarter: 2011Q1

REPORT INFORMATION
  Report Type: 
  Country: None (occurrence: None)
  Receive Date: 20110218
  Receipt Date: 20110204
  Transmission Date: 20110831
  Serious: No
  Sender: FDA-Public Use
  Company Number: US-BIOGENIDEC-2011BI005320

PATIENT
  Sex: Female

DRUGS (1)
  1. TYSABRI [Suspect]
     Indication: MULTIPLE SCLEROSIS
     Route: 042
     Dates: start: 20091007

REACTIONS (6)
  - JOINT EFFUSION [None]
  - CARDIOMEGALY [None]
  - CHEST PAIN [None]
  - DEPRESSED MOOD [None]
  - ARTHRALGIA [None]
  - MOBILITY DECREASED [None]
